FAERS Safety Report 7767395-2 (Version None)
Quarter: 2011Q3

REPORT INFORMATION
  Report Type: 
  Country: None (occurrence: None)
  Receive Date: 20110922
  Receipt Date: 20100823
  Transmission Date: 20111222
  Serious: No
  Sender: FDA-Public Use
  Company Number: US-ASTRAZENECA-2006UW07948

PATIENT
  Age: 24 Year
  Sex: Female
  Weight: 74.4 kg

DRUGS (17)
  1. SEROQUEL [Suspect]
     Dosage: 50-200 MG
     Route: 048
     Dates: start: 20060117, end: 20071129
  2. SEROQUEL [Suspect]
     Route: 048
     Dates: start: 20040820, end: 20070421
  3. SEROQUEL [Suspect]
     Dosage: 50-200 MG
     Route: 048
     Dates: start: 20030912
  4. SEROQUEL [Suspect]
     Route: 048
     Dates: start: 20040101
  5. SEROQUEL [Suspect]
     Route: 048
     Dates: start: 20071201
  6. SEROQUEL [Suspect]
     Route: 048
     Dates: start: 20071201
  7. SINEQUAN [Concomitant]
     Route: 048
     Dates: start: 19980101, end: 20000101
  8. SEROQUEL [Suspect]
     Indication: INSOMNIA
     Route: 048
     Dates: start: 20000101
  9. SEROQUEL [Suspect]
     Dosage: 50-200 MG
     Route: 048
     Dates: start: 20060117, end: 20071129
  10. PROZAC [Concomitant]
     Dates: start: 20030912
  11. SEROQUEL [Suspect]
     Dosage: 50-200 MG
     Route: 048
     Dates: start: 20030912
  12. METHYLPREDNISOLONE [Concomitant]
     Dates: start: 20020325
  13. NORVASC [Concomitant]
     Dosage: 5-10 MG
     Dates: start: 19991130
  14. SEROQUEL [Suspect]
     Indication: DEPRESSION
     Route: 048
     Dates: start: 20000101
  15. SEROQUEL [Suspect]
     Route: 048
     Dates: start: 20040101
  16. SEROQUEL [Suspect]
     Route: 048
     Dates: start: 20040820, end: 20070421
  17. RISPERDAL [Concomitant]
     Route: 048
     Dates: start: 20060101

REACTIONS (4)
  - TYPE 2 DIABETES MELLITUS [None]
  - SLEEP DISORDER [None]
  - GESTATIONAL DIABETES [None]
  - LOWER LIMB FRACTURE [None]
